FAERS Safety Report 7526307-7 (Version None)
Quarter: 2011Q2

REPORT INFORMATION
  Report Type: 
  Country: None (occurrence: None)
  Receive Date: 20110606
  Receipt Date: 20110512
  Transmission Date: 20111010
  Serious: Yes (Other)
  Sender: FDA-Public Use
  Company Number: US-BAYER-2011-019309

PATIENT
  Age: 30 Year
  Sex: Female
  Weight: 72.562 kg

DRUGS (16)
  1. NAPROSYN [Concomitant]
     Dosage: 500 MG, UNK
  2. CEFUROXIME [Concomitant]
     Dosage: 500 MG, UNK
  3. ATARAX [Concomitant]
     Dosage: 25 MG, UNK
  4. AZITHROMYCIN [Concomitant]
     Dosage: 250 MG, UNK
  5. YASMIN [Suspect]
     Indication: ORAL CONTRACEPTION
     Dosage: UNK
     Route: 048
     Dates: start: 20030325, end: 20070212
  6. CHANTIX [Concomitant]
     Dosage: 1 MG, UNK
  7. IBUPROFEN [Concomitant]
     Dosage: 800 MG, UNK
  8. ALBUTEROL SULFATE AUTOHALER [Concomitant]
     Dosage: 90 ?G, UNK
  9. MOTRIN [Concomitant]
     Indication: HEADACHE
  10. PROVENTIL [Concomitant]
  11. ZYRTEC [Concomitant]
     Dosage: 10 MG, UNK
  12. ENTEX PSE [Concomitant]
  13. OMEPRAZOLE [Concomitant]
     Dosage: 20 MG, UNK
  14. CHANTIX [Concomitant]
     Dosage: 0.5 MG, UNK
  15. RELPAX [Concomitant]
     Dosage: 40 MG, UNK
  16. PREDNISONE [Concomitant]

REACTIONS (2)
  - PAIN [None]
  - DEEP VEIN THROMBOSIS [None]
